FAERS Safety Report 15278145 (Version 4)
Quarter: 2020Q1

REPORT INFORMATION
  Report Type: Spontaneous
  Country: US (occurrence: US)
  Receive Date: 20180814
  Receipt Date: 20200318
  Transmission Date: 20200409
  Serious: Yes (Hospitalization)
  Sender: FDA-Public Use
  Company Number: US-ACTELION-A-US2018-177305

PATIENT
  Sex: Female

DRUGS (2)
  1. WARFARIN [Concomitant]
     Active Substance: WARFARIN
  2. TRACLEER [Suspect]
     Active Substance: BOSENTAN
     Indication: PULMONARY ARTERIAL HYPERTENSION
     Dosage: 125 MG, BID
     Route: 048

REACTIONS (7)
  - Living in residential institution [Not Recovered/Not Resolved]
  - Dyspnoea exertional [Unknown]
  - Feeling abnormal [Unknown]
  - Condition aggravated [Unknown]
  - Pneumonia [Unknown]
  - Hospice care [Unknown]
  - Dyspnoea [Unknown]
